FAERS Safety Report 14682214 (Version 1)
Quarter: 2018Q1

REPORT INFORMATION
  Report Type: Spontaneous
  Country: US (occurrence: US)
  Receive Date: 20180326
  Receipt Date: 20180326
  Transmission Date: 20180509
  Serious: No
  Sender: FDA-Public Use
  Company Number: US-ASTRAZENECA-2018SE24077

PATIENT
  Age: 64 Year
  Sex: Female

DRUGS (16)
  1. ENBREL [Suspect]
     Active Substance: ETANERCEPT
     Indication: RHEUMATOID ARTHRITIS
     Route: 065
     Dates: start: 2009
  2. LEVOXIN [Concomitant]
     Active Substance: LEVOFLOXACIN
     Indication: THYROID DISORDER
  3. FLUTICASONE. [Concomitant]
     Active Substance: FLUTICASONE
     Indication: THYROID DISORDER
  4. SYMBICORT [Suspect]
     Active Substance: BUDESONIDE\FORMOTEROL FUMARATE DIHYDRATE
     Indication: PULMONARY FIBROSIS
     Dosage: 4.5 MG, ONCE A DAY IN THE MORNING
     Route: 055
  5. VITAMIN D [Concomitant]
     Active Substance: CHOLECALCIFEROL
     Indication: THYROID DISORDER
  6. RANITIDINE. [Concomitant]
     Active Substance: RANITIDINE
     Indication: THYROID DISORDER
  7. MOBIC [Concomitant]
     Active Substance: MELOXICAM
     Indication: PAIN
  8. ALENDRONATE [Concomitant]
     Active Substance: ALENDRONATE SODIUM
     Indication: THYROID DISORDER
  9. BIOTIN [Concomitant]
     Active Substance: BIOTIN
     Indication: THYROID DISORDER
  10. LISINOPRIL. [Suspect]
     Active Substance: LISINOPRIL
     Indication: HYPERTENSION
     Route: 048
  11. SIMVASTATIN. [Concomitant]
     Active Substance: SIMVASTATIN
     Indication: THYROID DISORDER
  12. SYMBICORT [Suspect]
     Active Substance: BUDESONIDE\FORMOTEROL FUMARATE DIHYDRATE
     Indication: PULMONARY FIBROSIS
     Dosage: 4.5 MG, TWO TIMES A DAY
     Route: 055
  13. SERTRALINE [Concomitant]
     Active Substance: SERTRALINE HYDROCHLORIDE
     Indication: THYROID DISORDER
  14. FOLIC ACID. [Concomitant]
     Active Substance: FOLIC ACID
     Indication: THYROID DISORDER
  15. CALTRATE [Concomitant]
     Active Substance: CALCIUM CARBONATE
     Indication: THYROID DISORDER
  16. SULFASALAZINE. [Concomitant]
     Active Substance: SULFASALAZINE
     Indication: RHEUMATOID ARTHRITIS

REACTIONS (4)
  - Pain [Not Recovered/Not Resolved]
  - Musculoskeletal stiffness [Not Recovered/Not Resolved]
  - Drug ineffective [Not Recovered/Not Resolved]
  - Weight increased [Unknown]

NARRATIVE: CASE EVENT DATE: 201709
